FAERS Safety Report 18234077 (Version 1)
Quarter: 2020Q3

REPORT INFORMATION
  Report Type: Spontaneous
  Country: US (occurrence: US)
  Receive Date: 20200904
  Receipt Date: 20200904
  Transmission Date: 20201103
  Serious: No
  Sender: FDA-Public Use
  Company Number: US-SA-2020SA236833

PATIENT

DRUGS (1)
  1. TOUJEO [Suspect]
     Active Substance: INSULIN GLARGINE
     Indication: TYPE 2 DIABETES MELLITUS
     Dosage: 2 IU, QD
     Route: 065

REACTIONS (3)
  - Memory impairment [Unknown]
  - Blood glucose increased [Unknown]
  - Needle issue [Unknown]

NARRATIVE: CASE EVENT DATE: 20200831
